FAERS Safety Report 4827311-X (Version None)
Quarter: 2005Q4

REPORT INFORMATION
  Report Type: 
  Country: None (occurrence: None)
  Receive Date: 20051014
  Receipt Date: 20050803
  Transmission Date: 20060501
  Serious: No
  Sender: FDA-Public Use
  Company Number: 2005SP002214

PATIENT
  Age: 87 Year
  Sex: Female
  Weight: 50.3493 kg

DRUGS (8)
  1. LUNESTA [Suspect]
     Indication: INSOMNIA
     Dosage: 1 MG; HS; ORAL
     Route: 048
     Dates: start: 20050801, end: 20050802
  2. ALPHAGAN [Concomitant]
  3. TOPROL-XL [Concomitant]
  4. CELEXA [Concomitant]
  5. PLAVIX [Concomitant]
  6. VYTORIN [Concomitant]
  7. XALATAN [Concomitant]
  8. TIMOLOL MALEATE [Concomitant]

REACTIONS (2)
  - DIZZINESS [None]
  - HEADACHE [None]
